FAERS Safety Report 4443621-2 (Version None)
Quarter: 2004Q3

REPORT INFORMATION
  Report Type: 
  Country: None (occurrence: None)
  Receive Date: 20040827
  Receipt Date: 20040813
  Transmission Date: 20050211
  Serious: Yes (Death)
  Sender: FDA-Public Use
  Company Number: B0300505A

PATIENT
  Age: 41 Year
  Sex: Male

DRUGS (5)
  1. WELLBUTRIN [Suspect]
     Dosage: ORAL
     Route: 048
  2. IMIPRAMINE [Suspect]
  3. DESIPRAMINE HCL [Suspect]
  4. CLONAZEPAM [Concomitant]
  5. THIAMINE [Concomitant]

REACTIONS (12)
  - AGGRESSION [None]
  - CARDIO-RESPIRATORY ARREST [None]
  - COMPLETED SUICIDE [None]
  - CONVULSION [None]
  - DEPRESSED LEVEL OF CONSCIOUSNESS [None]
  - DISORIENTATION [None]
  - DRUG SCREEN POSITIVE [None]
  - DYSARTHRIA [None]
  - LETHARGY [None]
  - MULTIPLE DRUG OVERDOSE INTENTIONAL [None]
  - POSTICTAL STATE [None]
  - SINUS TACHYCARDIA [None]
